FAERS Safety Report 10071992 (Version 1)
Quarter: 2014Q1

REPORT INFORMATION
  Report Type: Spontaneous
  Country: US (occurrence: None)
  Receive Date: 20140314
  Receipt Date: 20140314
  Transmission Date: 20141002
  Serious: Yes (Death)
  Sender: FDA-Public Use
  Company Number: SYM-2014-18521

PATIENT
  Age: 80 Year
  Sex: Female

DRUGS (1)
  1. XENAZINE (TETRABENAZINE ) (12.5 MILLIGRAM, TABLETS) (TETRABENAZINE) [Suspect]
     Indication: HUNTINGTON^S DISEASE
     Dates: start: 200812, end: 201312

REACTIONS (1)
  - Death [None]
